FAERS Safety Report 20577882 (Version 1)
Quarter: 2022Q1

REPORT INFORMATION
  Report Type: Spontaneous
  Country: DE (occurrence: None)
  Receive Date: 20220309
  Receipt Date: 20220309
  Transmission Date: 20220423
  Serious: Yes (Life-Threatening)
  Sender: FDA-Public Use
  Company Number: None

PATIENT
  Age: 32 Year
  Sex: Female
  Weight: 80 kg

DRUGS (2)
  1. NORETHINDRONE [Suspect]
     Active Substance: NORETHINDRONE
     Indication: Ovarian cyst
     Dosage: DAILY ORAL  118 TABLETS?
     Route: 048
  2. ASPIRIN [Concomitant]
     Active Substance: ASPIRIN

REACTIONS (8)
  - Visual snow syndrome [None]
  - Brain neoplasm [None]
  - Pituitary tumour [None]
  - Disability [None]
  - Sleep disorder [None]
  - Hypnopompic hallucination [None]
  - Impaired quality of life [None]
  - Epilepsy [None]

NARRATIVE: CASE EVENT DATE: 20190707
